APPROVED DRUG PRODUCT: MOTOFEN HALF-STRENGTH
Active Ingredient: ATROPINE SULFATE; DIFENOXIN HYDROCHLORIDE
Strength: 0.025MG;0.5MG
Dosage Form/Route: TABLET;ORAL
Application: N017744 | Product #001
Applicant: LEGACY PHARMA INC
Approved: Approved Prior to Jan 1, 1982 | RLD: No | RS: No | Type: DISCN